FAERS Safety Report 4448730-X (Version None)
Quarter: 2004Q3

REPORT INFORMATION
  Report Type: 
  Country: None (occurrence: None)
  Receive Date: 20040909
  Receipt Date: 20040830
  Transmission Date: 20050211
  Serious: Yes (Death, Life-Threatening)
  Sender: FDA-Public Use
  Company Number: 2004JP001059

PATIENT
  Age: 5 Year
  Sex: Female

DRUGS (4)
  1. PROGRAF [Suspect]
     Indication: BONE MARROW TRANSPLANT
     Dosage: INTRAVENOUS
     Route: 042
     Dates: start: 20030223, end: 20030414
  2. PROGRAF [Suspect]
     Indication: BONE MARROW TRANSPLANT
     Dosage: INTRAVENOUS
     Route: 042
     Dates: start: 20030422, end: 20030511
  3. MEDROL [Concomitant]
  4. CELLCEPT [Concomitant]

REACTIONS (3)
  - ENCEPHALOPATHY [None]
  - SEPSIS [None]
  - SHOCK HAEMORRHAGIC [None]
